FAERS Safety Report 23015452 (Version 2)
Quarter: 2023Q4

REPORT INFORMATION
  Report Type: Spontaneous
  Country: CH (occurrence: CH)
  Receive Date: 20231002
  Receipt Date: 20231107
  Transmission Date: 20240110
  Serious: Yes (Other)
  Sender: FDA-Public Use
  Company Number: None

PATIENT
  Age: 65 Year
  Sex: Female

DRUGS (19)
  1. ESOMEPRAZOLE MAGNESIUM [Suspect]
     Active Substance: ESOMEPRAZOLE\ESOMEPRAZOLE MAGNESIUM\ESOMEPRAZOLE MAGNESIUM DIHYDRATE
     Indication: Product used for unknown indication
     Dosage: 40 MILLIGRAM DAILY; FORM STRENGTH : 40 MG
     Route: 048
  2. ALLOPURINOL [Suspect]
     Active Substance: ALLOPURINOL
     Indication: Product used for unknown indication
     Dosage: 300 MILLIGRAM DAILY; 300 MG/DAY, 30 PCS 1-0-0-0 (ACCORDING TO THE LIST OF FAMILY DOCTOR)
     Route: 048
  3. METHOTREXATE [Suspect]
     Active Substance: METHOTREXATE
     Indication: Polyarthritis
     Dosage: 5 MG/WEEK, (PREVIOUSLY METHOTREXATE 9/05 TO 5/18 THEN DISCONTINUED DUE TO INJECTION AVERSION)
     Route: 048
     Dates: start: 202207
  4. VITAMIN D3 [Interacting]
     Active Substance: CHOLECALCIFEROL
     Indication: Product used for unknown indication
     Dosage: 4000 IU (INTERNATIONAL UNIT) DAILY; FORM STRENGTH : 2000 IU
     Route: 048
  5. ZALDIAR [Suspect]
     Active Substance: ACETAMINOPHEN\TRAMADOL HYDROCHLORIDE
     Indication: Product used for unknown indication
     Dosage: FORM STRENGTH : 37.5/325 MG, 4X/DAY
     Route: 048
  6. FOSAVANCE [Interacting]
     Active Substance: ALENDRONATE SODIUM\CHOLECALCIFEROL
     Indication: Product used for unknown indication
     Dosage: 70/5600 1X/WEEK
  7. ZINC GLUCONATE [Suspect]
     Active Substance: ZINC GLUCONATE
     Indication: Product used for unknown indication
     Dosage: 20 MILLIGRAM DAILY; FORM STRENGTH : 20 MG
     Route: 048
  8. PREDNISOLONE [Suspect]
     Active Substance: PREDNISOLONE
     Indication: Polyarthritis
     Dosage: 5 MILLIGRAM DAILY; 100 PCS 1-0-0-0, FORM STRENGTH : 5 MG
     Route: 048
  9. ENTOCORT [Suspect]
     Active Substance: BUDESONIDE
     Indication: Product used for unknown indication
     Dosage: 9 MILLIGRAM DAILY; BUDESONIDE ENTOCORT CIR RET 3 MG 100 PCS 1-1-1-0 AFTER MEALS
     Route: 048
  10. PALEXIA [Suspect]
     Active Substance: TAPENTADOL HYDROCHLORIDE
     Indication: Product used for unknown indication
     Dosage: 100 MILLIGRAM DAILY; 60 PCS 1-0-1-0, FORM STRENGTH : 50 MG
     Route: 048
  11. DICLOFENAC SODIUM [Suspect]
     Active Substance: DICLOFENAC\DICLOFENAC SODIUM
     Indication: Product used for unknown indication
     Dosage: DICLOFENAC ECOFENAC SANDOZ LIPOGEL 1 % 100 G
  12. ELIQUIS [Suspect]
     Active Substance: APIXABAN
     Indication: Thrombosis prophylaxis
     Dosage: 5 MILLIGRAM DAILY; 168 PCS 1-0-1-0, FORM STRENGTH : 2.5 MG
     Route: 048
  13. MOTILIUM [Suspect]
     Active Substance: DOMPERIDONE
     Indication: Product used for unknown indication
     Dosage: 10 MILLIGRAM DAILY; MELTING TABLET, 30 PIECES, 1-0-0-0, FORM STRENGTH : 10 MG
     Route: 060
  14. CREON [Suspect]
     Active Substance: PANCRELIPASE AMYLASE\PANCRELIPASE LIPASE\PANCRELIPASE PROTEASE
     Indication: Product used for unknown indication
     Dosage: 2 DOSAGE FORMS DAILY; CAPS 100 PCS 1-0-1-0
     Route: 048
  15. FEXOFENADINE HYDROCHLORIDE [Suspect]
     Active Substance: FEXOFENADINE HYDROCHLORIDE
     Indication: Product used for unknown indication
     Dosage: 360 MILLIGRAM DAILY; 30 PCS 1-0-1-0, FORM STRENGTH : 180 MG
     Route: 048
  16. CALCIUM CARBONATE\CHOLECALCIFEROL [Interacting]
     Active Substance: CALCIUM CARBONATE\CHOLECALCIFEROL
     Indication: Product used for unknown indication
     Dosage: 6 DOSAGE FORMS DAILY; KALCIPOS-D3 FILM TABLET 500/800 DS 90 PIECES 2-2-2-0
  17. CALCITRIOL [Interacting]
     Active Substance: CALCITRIOL
     Indication: Product used for unknown indication
     Dosage: .5 MICROGRAM DAILY; KAPS BLIST 100 PCS 1-0-0-0, FORM STRENGTH : 0.5 MCG
     Route: 048
  18. LEVOTHYROXINE [Concomitant]
     Active Substance: LEVOTHYROXINE
     Indication: Autoimmune thyroiditis
     Dosage: 50 MICROGRAM DAILY; 100 PCS 1-0-0-0, FORM STRENGTH : 0.05 MG
     Route: 048
  19. LEVOTHYROXINE [Concomitant]
     Active Substance: LEVOTHYROXINE
     Indication: Autoimmune thyroiditis
     Dosage: 100 MICROGRAM DAILY; 100 PCS 1-0-0-0, FORM STRENGTH : 0.1 MG
     Route: 048

REACTIONS (4)
  - Anaemia macrocytic [Unknown]
  - Liver disorder [Unknown]
  - Overdose [Unknown]
  - Drug interaction [Unknown]
